FAERS Safety Report 24528114 (Version 1)
Quarter: 2024Q4

REPORT INFORMATION
  Report Type: Spontaneous
  Country: NO (occurrence: NO)
  Receive Date: 20241021
  Receipt Date: 20241021
  Transmission Date: 20250115
  Serious: Yes (Disabling)
  Sender: NOVARTIS
  Company Number: None

PATIENT
  Age: 69 Year
  Sex: Male

DRUGS (1)
  1. EXFORGE [Suspect]
     Active Substance: AMLODIPINE BESYLATE\VALSARTAN
     Indication: Hypertension
     Dosage: UNK (1X1)
     Route: 048
     Dates: start: 20240501

REACTIONS (1)
  - Rheumatic disorder [Recovering/Resolving]

NARRATIVE: CASE EVENT DATE: 20240501
